FAERS Safety Report 22083218 (Version 1)
Quarter: 2023Q1

REPORT INFORMATION
  Report Type: Spontaneous
  Country: US (occurrence: US)
  Receive Date: 20230310
  Receipt Date: 20230310
  Transmission Date: 20230418
  Serious: Yes (Other)
  Sender: FDA-Public Use
  Company Number: US-SANOFI-01519412

PATIENT
  Age: 28 Year
  Sex: Male

DRUGS (8)
  1. ALPROLIX [Suspect]
     Active Substance: EFTRENONACOG ALFA
     Indication: Factor IX deficiency
     Dosage: 4250 U (+/- 10%), BIW
     Route: 041
  2. ALPROLIX [Suspect]
     Active Substance: EFTRENONACOG ALFA
     Indication: Factor IX deficiency
     Dosage: 4250 U (+/- 10%), BIW
     Route: 041
  3. ALPROLIX [Suspect]
     Active Substance: EFTRENONACOG ALFA
     Dosage: 8500 U (+/- 10%), PRN (MAJOR BLEEDS)
     Route: 041
  4. ALPROLIX [Suspect]
     Active Substance: EFTRENONACOG ALFA
     Dosage: 8500 U (+/- 10%), PRN (MAJOR BLEEDS)
     Route: 041
  5. ALPROLIX [Suspect]
     Active Substance: EFTRENONACOG ALFA
     Dosage: 4250 U (+/- 10%), PRN (MINOR BLEEDS)
     Route: 041
  6. ALPROLIX [Suspect]
     Active Substance: EFTRENONACOG ALFA
     Dosage: 4250 U (+/- 10%), PRN (MINOR BLEEDS)
     Route: 041
  7. MELOXICAM [Concomitant]
     Active Substance: MELOXICAM
  8. OMEPRAZOLE [Concomitant]
     Active Substance: OMEPRAZOLE

REACTIONS (1)
  - Haemorrhage [Unknown]
